FAERS Safety Report 16249281 (Version 6)
Quarter: 2019Q4

REPORT INFORMATION
  Report Type: Spontaneous
  Country: CA (occurrence: CA)
  Receive Date: 20190429
  Receipt Date: 20191119
  Transmission Date: 20200122
  Serious: Yes (Other)
  Sender: FDA-Public Use
  Company Number: CA-ORION CORPORATION ORION PHARMA-TREX2019-1281

PATIENT
  Age: 71 Year
  Sex: Female

DRUGS (3)
  1. TEVA PANTOPRAZOLE [Concomitant]
     Active Substance: PANTOPRAZOLE SODIUM
     Route: 065
  2. METHOTREXATE (TRADE NAME UNKNOWN) [Suspect]
     Active Substance: METHOTREXATE
     Indication: PRODUCT USED FOR UNKNOWN INDICATION
     Route: 065
  3. NAPROXEN. [Concomitant]
     Active Substance: NAPROXEN
     Dosage: FREQUENCY REPORTED AS Q (EVERY)
     Route: 065

REACTIONS (6)
  - Stress [Unknown]
  - Malignant melanoma [Unknown]
  - Rheumatoid arthritis [Recovering/Resolving]
  - Neoplasm recurrence [Unknown]
  - Wound dehiscence [Not Recovered/Not Resolved]
  - Impaired healing [Not Recovered/Not Resolved]
